FAERS Safety Report 7757301-9 (Version None)
Quarter: 2011Q3

REPORT INFORMATION
  Report Type: 
  Country: None (occurrence: None)
  Receive Date: 20110916
  Receipt Date: 20110906
  Transmission Date: 20111222
  Serious: No
  Sender: FDA-Public Use
  Company Number: US-B.I. PHARMACEUTICALS,INC./RIDGEFIELD-2011-BP-21650BP

PATIENT
  Sex: Female

DRUGS (2)
  1. SPIRIVA [Suspect]
  2. PROAIR HFA [Concomitant]

REACTIONS (3)
  - FALL [None]
  - DRY MOUTH [None]
  - DRY THROAT [None]
